FAERS Safety Report 10361968 (Version 1)
Quarter: 2014Q1

REPORT INFORMATION
  Report Type: Spontaneous
  Country: US (occurrence: None)
  Receive Date: 20140306
  Receipt Date: 20140306
  Transmission Date: 20141002
  Serious: Yes (Disabling, Other)
  Sender: FDA-Public Use
  Company Number: 163-21880-13051996

PATIENT
  Age: 53 Year
  Sex: Male
  Weight: 92.53 kg

DRUGS (6)
  1. REVLIMID [Suspect]
     Indication: PLASMA CELL MYELOMA
     Route: 048
     Dates: start: 201303, end: 20130313
  2. NIFEDIPINE [Concomitant]
  3. VALTREX (VALACICLOVIR HYDROCHLORIDE) [Concomitant]
  4. BACTRIM DS (BACTRIM) [Concomitant]
  5. ASA (ACETYLSALICYLIC ACID) [Concomitant]
  6. VITAMIN D (ERGOCALCIFEROL) [Concomitant]

REACTIONS (3)
  - Hypersensitivity [None]
  - Urticaria [None]
  - Rash generalised [None]
